FAERS Safety Report 11044646 (Version 2)
Quarter: 2015Q2

REPORT INFORMATION
  Report Type: Spontaneous
  Country: US (occurrence: US)
  Receive Date: 20150417
  Receipt Date: 20150508
  Transmission Date: 20150821
  Serious: Yes (Hospitalization, Other)
  Sender: FDA-Public Use
  Company Number: US-BAXTER-2015BAX020069

PATIENT
  Sex: Male

DRUGS (40)
  1. TYLENOL [Concomitant]
     Active Substance: ACETAMINOPHEN
     Indication: PRODUCT USED FOR UNKNOWN INDICATION
     Route: 048
  2. VOTRIENT [Concomitant]
     Active Substance: PAZOPANIB HYDROCHLORIDE
     Indication: PRODUCT USED FOR UNKNOWN INDICATION
     Route: 048
     Dates: start: 20140922
  3. PREDNISONE. [Concomitant]
     Active Substance: PREDNISONE
     Dates: start: 201112
  4. DILAUDID [Concomitant]
     Active Substance: HYDROMORPHONE HYDROCHLORIDE
     Route: 048
     Dates: start: 20130327
  5. DILAUDID [Concomitant]
     Active Substance: HYDROMORPHONE HYDROCHLORIDE
     Route: 048
     Dates: start: 20121107
  6. SUTENT [Concomitant]
     Active Substance: SUNITINIB MALATE
     Indication: PRODUCT USED FOR UNKNOWN INDICATION
     Dosage: 3 WEEKS ON AND 1 WEEK OFF
     Route: 054
     Dates: start: 20111113
  7. TAXOL [Suspect]
     Active Substance: PACLITAXEL
     Dosage: BEGINNING 6TH CYCLE
     Route: 065
     Dates: start: 200908, end: 200912
  8. ETOPOSIDE. [Suspect]
     Active Substance: ETOPOSIDE
     Indication: THYMIC CANCER METASTATIC
     Dosage: FIRST CYCLE; 3 DAY REGIMEN
     Route: 065
     Dates: start: 20110124
  9. CISPLATIN. [Suspect]
     Active Substance: CISPLATIN
     Dosage: SECOND CYCLE
     Route: 065
     Dates: start: 20110302
  10. LASIX [Concomitant]
     Active Substance: FUROSEMIDE
     Indication: PRODUCT USED FOR UNKNOWN INDICATION
     Route: 048
     Dates: start: 20150211
  11. PREDNISONE. [Concomitant]
     Active Substance: PREDNISONE
     Route: 048
     Dates: start: 20140326
  12. CYTOXAN [Suspect]
     Active Substance: CYCLOPHOSPHAMIDE
     Route: 065
     Dates: start: 20091230
  13. LEVOTHROXINE [Concomitant]
     Indication: PRODUCT USED FOR UNKNOWN INDICATION
     Route: 048
     Dates: start: 20141216
  14. CISPLATINUM [Suspect]
     Active Substance: CISPLATIN
     Indication: THYMIC CANCER METASTATIC
     Dosage: 5 CYCLES
     Route: 065
     Dates: start: 200711
  15. CARBOPLATINUM [Suspect]
     Active Substance: CARBOPLATIN
     Dosage: BEGINNING 6TH CYCLE
     Route: 065
     Dates: start: 200908, end: 200912
  16. PREDNISONE. [Concomitant]
     Active Substance: PREDNISONE
     Route: 048
     Dates: start: 20130707
  17. DILAUDID [Concomitant]
     Active Substance: HYDROMORPHONE HYDROCHLORIDE
     Route: 042
  18. CISPLATINUM [Suspect]
     Active Substance: CISPLATIN
     Route: 065
     Dates: start: 20140903
  19. GEMZAR [Suspect]
     Active Substance: GEMCITABINE HYDROCHLORIDE
     Indication: THYMIC CANCER METASTATIC
     Route: 065
     Dates: start: 2008
  20. CARBOPLATINUM [Suspect]
     Active Substance: CARBOPLATIN
     Indication: THYMIC CANCER METASTATIC
     Route: 065
     Dates: start: 2009
  21. APREPITANT. [Concomitant]
     Active Substance: APREPITANT
     Indication: PRODUCT USED FOR UNKNOWN INDICATION
     Dosage: DOSE PACK 125-80-80
     Route: 048
     Dates: start: 20110412
  22. DILAUDID [Concomitant]
     Active Substance: HYDROMORPHONE HYDROCHLORIDE
     Indication: PAIN
     Route: 048
     Dates: start: 20140527
  23. CYTOXAN [Suspect]
     Active Substance: CYCLOPHOSPHAMIDE
     Indication: THYMIC CANCER METASTATIC
     Dosage: 5 CYCLES
     Route: 065
     Dates: start: 200711
  24. 5 FU [Suspect]
     Active Substance: FLUOROURACIL
     Indication: THYMIC CANCER METASTATIC
     Route: 065
     Dates: start: 20091230
  25. PEMETREXED [Suspect]
     Active Substance: PEMETREXED
     Indication: THYMIC CANCER METASTATIC
     Route: 065
     Dates: start: 20101022, end: 20110112
  26. ETOPOSIDE. [Suspect]
     Active Substance: ETOPOSIDE
     Dosage: SECOND CYCLE
     Route: 065
     Dates: start: 20110302
  27. CISPLATIN. [Suspect]
     Active Substance: CISPLATIN
     Indication: THYMIC CANCER METASTATIC
     Dosage: FIRST CYCLE
     Route: 065
     Dates: start: 20110124
  28. IRINOTECAN [Suspect]
     Active Substance: IRINOTECAN
     Indication: THYMIC CANCER METASTATIC
     Route: 065
     Dates: start: 20140401
  29. LOMOTIL [Concomitant]
     Active Substance: ATROPINE SULFATE\DIPHENOXYLATE HYDROCHLORIDE
     Indication: PRODUCT USED FOR UNKNOWN INDICATION
     Route: 048
     Dates: start: 20140910
  30. MAGNESIUM OXIDE. [Concomitant]
     Active Substance: MAGNESIUM OXIDE
     Indication: PRODUCT USED FOR UNKNOWN INDICATION
     Route: 048
     Dates: start: 20140527
  31. PREDNISONE. [Concomitant]
     Active Substance: PREDNISONE
     Route: 048
     Dates: start: 20130114
  32. OMEPRAZOLE. [Concomitant]
     Active Substance: OMEPRAZOLE
     Indication: PRODUCT USED FOR UNKNOWN INDICATION
     Route: 065
     Dates: start: 201503
  33. ADRIAMYCIN [Suspect]
     Active Substance: DOXORUBICIN HYDROCHLORIDE
     Indication: THYMIC CANCER METASTATIC
     Dosage: 5 CYCLES
     Route: 065
     Dates: start: 200711
  34. ADRIAMYCIN [Suspect]
     Active Substance: DOXORUBICIN HYDROCHLORIDE
     Route: 065
  35. METHOTREXATE [Suspect]
     Active Substance: METHOTREXATE
     Indication: THYMIC CANCER METASTATIC
     Route: 065
     Dates: start: 20091230
  36. PREDNISONE. [Concomitant]
     Active Substance: PREDNISONE
     Indication: PRODUCT USED FOR UNKNOWN INDICATION
     Route: 048
     Dates: start: 20140902
  37. CISPLATINUM [Suspect]
     Active Substance: CISPLATIN
     Route: 065
  38. TAXOL [Suspect]
     Active Substance: PACLITAXEL
     Indication: THYMIC CANCER METASTATIC
     Route: 065
     Dates: start: 2009
  39. IBUPROFEN. [Concomitant]
     Active Substance: IBUPROFEN
     Indication: PRODUCT USED FOR UNKNOWN INDICATION
     Route: 048
  40. OXYGEN. [Concomitant]
     Active Substance: OXYGEN
     Indication: PRODUCT USED FOR UNKNOWN INDICATION
     Route: 065

REACTIONS (17)
  - Skin discolouration [Unknown]
  - Pain [Unknown]
  - Lung infiltration [Unknown]
  - Thymic cancer metastatic [Unknown]
  - Candida infection [Unknown]
  - Diarrhoea [Unknown]
  - Chest pain [Recovered/Resolved]
  - Aplasia pure red cell [Unknown]
  - Blood urine present [Unknown]
  - Restrictive pulmonary disease [Unknown]
  - Hand-foot-and-mouth disease [Unknown]
  - Hypothyroidism [Unknown]
  - Trismus [Unknown]
  - Chest pain [Unknown]
  - Neuropathy peripheral [Unknown]
  - Dyspnoea [Unknown]
  - Lip ulceration [Unknown]

NARRATIVE: CASE EVENT DATE: 2009
